FAERS Safety Report 8120690-X (Version None)
Quarter: 2012Q1

REPORT INFORMATION
  Report Type: 
  Country: None (occurrence: None)
  Receive Date: 20120207
  Receipt Date: 20120127
  Transmission Date: 20120608
  Serious: Yes (Hospitalization)
  Sender: FDA-Public Use
  Company Number: JP-ROCHE-1035536

PATIENT
  Sex: Male

DRUGS (15)
  1. CONTOL [Concomitant]
     Indication: PROPHYLAXIS
     Dosage: 4-6MG
     Route: 048
     Dates: start: 20030131
  2. AZATHIOPRINE [Concomitant]
     Indication: PROPHYLAXIS AGAINST TRANSPLANT REJECTION
     Dosage: DOSAGE IS UNCERTAIN.
     Route: 048
  3. INHIBACE (JAPAN) [Concomitant]
     Indication: PROPHYLAXIS
     Route: 048
     Dates: start: 20030131
  4. LASIX [Concomitant]
     Indication: PROPHYLAXIS
     Dosage: 20-30MG
     Route: 048
     Dates: start: 20030131
  5. DIAZEPAM [Concomitant]
     Indication: PROPHYLAXIS
     Dosage: FORM: SYRUP
     Route: 048
     Dates: start: 20030131
  6. HIRNAMIN [Concomitant]
     Indication: PROPHYLAXIS
     Dosage: 5-12MG
     Route: 048
     Dates: start: 20030131
  7. MINIPRESS [Concomitant]
     Indication: PROPHYLAXIS
     Route: 048
     Dates: start: 20050131
  8. MYCOPHENOLATE MOFETIL (CELLCEPT) [Suspect]
     Route: 048
  9. NEORAL [Concomitant]
     Indication: PROPHYLAXIS AGAINST TRANSPLANT REJECTION
     Dosage: DOSAGE IS UNCERTAIN.
     Route: 048
  10. MYCOPHENOLATE MOFETIL (CELLCEPT) [Suspect]
     Indication: PROPHYLAXIS AGAINST TRANSPLANT REJECTION
     Route: 048
     Dates: start: 20030131
  11. NEORAL [Concomitant]
     Dosage: 100-260MG
     Route: 048
     Dates: start: 20030131
  12. SULFAMETHOXAZOLE [Concomitant]
     Indication: PROPHYLAXIS
     Route: 048
     Dates: start: 20030131
  13. DETANTOL [Concomitant]
     Indication: PROPHYLAXIS
     Route: 048
     Dates: start: 20030131
  14. PHENOBARBITAL TAB [Concomitant]
     Indication: PROPHYLAXIS
     Route: 048
     Dates: start: 20050131
  15. LIORESAL [Concomitant]
     Indication: PROPHYLAXIS
     Route: 048
     Dates: start: 20050131

REACTIONS (2)
  - BRADYCARDIA [None]
  - PNEUMONIA ASPIRATION [None]
